FAERS Safety Report 13788896 (Version 1)
Quarter: 2017Q3

REPORT INFORMATION
  Report Type: Spontaneous
  Country: US (occurrence: US)
  Receive Date: 20170725
  Receipt Date: 20170725
  Transmission Date: 20171127
  Serious: No
  Sender: FDA-Public Use
  Company Number: US-UNITED THERAPEUTICS-UNT-2017-005197

PATIENT
  Sex: Female

DRUGS (1)
  1. REMODULIN [Suspect]
     Active Substance: TREPROSTINIL
     Indication: PULMONARY ARTERIAL HYPERTENSION
     Dosage: 0.152 ?G/KG, CONTINUING
     Route: 041
     Dates: start: 20120131

REACTIONS (3)
  - Central venous catheterisation [Unknown]
  - Device issue [Unknown]
  - Nausea [Unknown]

NARRATIVE: CASE EVENT DATE: 20170405
